FAERS Safety Report 8621814-8 (Version None)
Quarter: 2012Q3

REPORT INFORMATION
  Report Type: 
  Country: None (occurrence: None)
  Receive Date: 20120821
  Receipt Date: 20120821
  Transmission Date: 20120928
  Serious: Yes (Hospitalization)
  Sender: FDA-Public Use
  Company Number: None

PATIENT
  Age: 30 Year
  Sex: Female
  Weight: 68.0396 kg

DRUGS (1)
  1. FLUDROCORTISONE .1 MG SQUIBB [Suspect]
     Indication: ORTHOSTATIC HYPOTENSION
     Dosage: .2MG NIGHTLY
     Dates: start: 20120421, end: 20120812

REACTIONS (6)
  - FATIGUE [None]
  - VISION BLURRED [None]
  - DISORIENTATION [None]
  - BLOOD PRESSURE INCREASED [None]
  - BLOOD POTASSIUM INCREASED [None]
  - ASTHENIA [None]
